FAERS Safety Report 21989387 (Version 1)
Quarter: 2023Q1

REPORT INFORMATION
  Report Type: Spontaneous
  Country: US (occurrence: None)
  Receive Date: 20230210
  Receipt Date: 20230210
  Transmission Date: 20230417
  Serious: Yes (Hospitalization)
  Sender: FDA-Public Use
  Company Number: None

PATIENT
  Sex: Female

DRUGS (1)
  1. CAPTOPRIL [Suspect]
     Active Substance: CAPTOPRIL
     Dates: start: 20221030, end: 20230123

REACTIONS (4)
  - Product substitution issue [None]
  - Abdominal pain upper [None]
  - Rectal haemorrhage [None]
  - Colitis [None]

NARRATIVE: CASE EVENT DATE: 20230122
